FAERS Safety Report 9767060 (Version 1)
Quarter: 2013Q4

REPORT INFORMATION
  Report Type: Spontaneous
  Country: US (occurrence: US)
  Receive Date: 20131217
  Receipt Date: 20131217
  Transmission Date: 20140711
  Serious: No
  Sender: FDA-Public Use
  Company Number: US-TEVA-449568USA

PATIENT
  Age: 47 Year
  Sex: Female
  Weight: 57.2 kg

DRUGS (3)
  1. NUVIGIL [Suspect]
     Indication: NARCOLEPSY
     Dates: start: 2007, end: 20131124
  2. NUVIGIL [Suspect]
     Dosage: 500 MILLIGRAM DAILY;
     Dates: start: 20131125
  3. CARAFATE [Concomitant]
     Indication: GASTRIC ULCER

REACTIONS (5)
  - Chromaturia [Not Recovered/Not Resolved]
  - Influenza like illness [Not Recovered/Not Resolved]
  - Pain [Not Recovered/Not Resolved]
  - Fatigue [Not Recovered/Not Resolved]
  - Pyrexia [Recovered/Resolved]
